FAERS Safety Report 17651080 (Version 1)
Quarter: 2020Q2

REPORT INFORMATION
  Report Type: Spontaneous
  Country: US (occurrence: US)
  Receive Date: 20200409
  Receipt Date: 20200409
  Transmission Date: 20200713
  Serious: Yes (Hospitalization)
  Sender: FDA-Public Use
  Company Number: None

PATIENT
  Age: 58 Year
  Sex: Male
  Weight: 118.39 kg

DRUGS (1)
  1. NAPROXEN (NAPROXEN 500MG TAB) [Suspect]
     Active Substance: NAPROXEN
     Indication: UPPER GASTROINTESTINAL HAEMORRHAGE
     Route: 048
     Dates: start: 20180818, end: 20190104

REACTIONS (4)
  - Abdominal pain upper [None]
  - Microcytic anaemia [None]
  - Upper gastrointestinal haemorrhage [None]
  - Gastroduodenal ulcer [None]

NARRATIVE: CASE EVENT DATE: 20190102
